FAERS Safety Report 16320302 (Version 4)
Quarter: 2019Q2

REPORT INFORMATION
  Report Type: Spontaneous
  Country: US (occurrence: US)
  Receive Date: 20190516
  Receipt Date: 20190624
  Transmission Date: 20190711
  Serious: No
  Sender: FDA-Public Use
  Company Number: US-PFIZER INC-2019203476

PATIENT
  Age: 57 Year
  Sex: Female
  Weight: 126.98 kg

DRUGS (1)
  1. ELETRIPTAN HBR [Suspect]
     Active Substance: ELETRIPTAN HYDROBROMIDE
     Indication: MIGRAINE
     Dosage: 40 MG, AS NEEDED
     Route: 048
     Dates: start: 2017, end: 2018

REACTIONS (4)
  - Drug ineffective [Unknown]
  - Pain [Unknown]
  - Therapeutic product effect delayed [Unknown]
  - Vomiting [Unknown]
